FAERS Safety Report 8171408-6 (Version None)
Quarter: 2012Q1

REPORT INFORMATION
  Report Type: 
  Country: None (occurrence: None)
  Receive Date: 20120228
  Receipt Date: 20120218
  Transmission Date: 20120608
  Serious: Yes (Other)
  Sender: FDA-Public Use
  Company Number: US-ABBOTT-12P-163-0907553-00

PATIENT
  Sex: Female

DRUGS (3)
  1. MULTI-VITAMINS [Concomitant]
     Indication: PRODUCT USED FOR UNKNOWN INDICATION
  2. HUMIRA [Suspect]
     Indication: PSORIASIS
     Dates: end: 20110428
  3. DHA [Concomitant]
     Indication: PRODUCT USED FOR UNKNOWN INDICATION

REACTIONS (5)
  - BLOOD PRESSURE DECREASED [None]
  - PREMATURE LABOUR [None]
  - DEHYDRATION [None]
  - POSTPARTUM HAEMORRHAGE [None]
  - ORAL LICHEN PLANUS [None]
